FAERS Safety Report 5328063-X (Version None)
Quarter: 2007Q2

REPORT INFORMATION
  Report Type: 
  Country: None (occurrence: None)
  Receive Date: 20070517
  Receipt Date: 20070502
  Transmission Date: 20071010
  Serious: Yes (Life-Threatening, Hospitalization, Disabling)
  Sender: FDA-Public Use
  Company Number: IN-GENENTECH-241458

PATIENT
  Sex: Female

DRUGS (7)
  1. HERCEPTIN [Suspect]
     Indication: BREAST CANCER METASTATIC
     Dosage: 288 MG, SINGLE
     Route: 042
     Dates: start: 20070326
  2. MYOCET [Suspect]
     Indication: BREAST CANCER METASTATIC
     Dosage: 86 MG, SINGLE
     Route: 042
     Dates: start: 20070326
  3. PACLITAXEL [Suspect]
     Indication: BREAST CANCER METASTATIC
     Dosage: 138 MG, SINGLE
     Route: 042
     Dates: start: 20070326
  4. MUCAINE [Concomitant]
     Indication: DRUG USE FOR UNKNOWN INDICATION
     Dates: start: 20070326
  5. SPIRONOLACTONE [Concomitant]
     Indication: DRUG USE FOR UNKNOWN INDICATION
     Dates: start: 20070320, end: 20070331
  6. CORDALIN [Concomitant]
     Indication: DRUG USE FOR UNKNOWN INDICATION
     Dates: start: 20070326, end: 20070331
  7. KYTRIL [Concomitant]
     Indication: DRUG USE FOR UNKNOWN INDICATION

REACTIONS (3)
  - ANAEMIA [None]
  - NEUTROPENIA [None]
  - STOMATITIS [None]
